FAERS Safety Report 15305480 (Version 1)
Quarter: 2018Q3

REPORT INFORMATION
  Report Type: Spontaneous
  Country: IT (occurrence: IT)
  Receive Date: 20180822
  Receipt Date: 20180822
  Transmission Date: 20181010
  Serious: Yes (Other)
  Sender: FDA-Public Use
  Company Number: IT-AUROBINDO-AUR-APL-2018-042627

PATIENT
  Age: 80 Year
  Sex: Male

DRUGS (4)
  1. ORPHENADRINE [Suspect]
     Active Substance: ORPHENADRINE
     Indication: MAJOR DEPRESSION
     Dosage: 100 MILLIGRAM, ONCE A DAY (QD)
     Route: 065
  2. AMITRIPTYLINE HYDROCHLORIDE. [Suspect]
     Active Substance: AMITRIPTYLINE HYDROCHLORIDE
     Indication: MAJOR DEPRESSION
     Dosage: 40 MILLIGRAM, ONCE A DAY (QD)
     Route: 065
  3. HALOPERIDOL. [Suspect]
     Active Substance: HALOPERIDOL
     Indication: MAJOR DEPRESSION
     Dosage: 2 MILLIGRAM, ONCE A DAY (QD)
     Route: 065
  4. LORAZEPAM. [Suspect]
     Active Substance: LORAZEPAM
     Indication: MAJOR DEPRESSION
     Dosage: 2 MILLIGRAM, ONCE A DAY (QD)
     Route: 065

REACTIONS (8)
  - Hallucination [Recovered/Resolved]
  - Delirium [Recovered/Resolved]
  - Agitation [Recovered/Resolved]
  - Persecutory delusion [Recovered/Resolved]
  - Confusional state [Recovered/Resolved]
  - Sedation [Recovered/Resolved]
  - Condition aggravated [Recovered/Resolved]
  - Insomnia [Recovered/Resolved]
